FAERS Safety Report 19592990 (Version 1)
Quarter: 2021Q3

REPORT INFORMATION
  Report Type: Spontaneous
  Country: GB (occurrence: GB)
  Receive Date: 20210722
  Receipt Date: 20210722
  Transmission Date: 20211014
  Serious: Yes (Other)
  Sender: FDA-Public Use
  Company Number: GB-AUROBINDO-AUR-APL-2021-031732

PATIENT
  Age: 22 Year
  Sex: Female
  Weight: 58 kg

DRUGS (3)
  1. FEXOFENADINE [Concomitant]
     Active Substance: FEXOFENADINE HYDROCHLORIDE
     Indication: PRODUCT USED FOR UNKNOWN INDICATION
     Dosage: 1 DOSAGE FORM, ONCE A DAY
     Route: 065
     Dates: start: 20210628
  2. FLUCONAZOLE HARD CAPSULES [Suspect]
     Active Substance: FLUCONAZOLE
     Indication: VULVOVAGINAL CANDIDIASIS
     Dosage: 150 MILLIGRAM, THREE TIMES A MONTH
     Route: 065
  3. LEVEST [Concomitant]
     Indication: CONTRACEPTION
     Dosage: 1 DOSAGE FORM, ONCE A DAY (TAKE ONE TABLET AT THE SAM...   )
     Route: 065
     Dates: start: 20210528

REACTIONS (1)
  - Palpitations [Recovered/Resolved]
